FAERS Safety Report 10334928 (Version 4)
Quarter: 2018Q3

REPORT INFORMATION
  Report Type: Report from Study
  Country: KR (occurrence: KR)
  Receive Date: 20140723
  Receipt Date: 20180727
  Transmission Date: 20181010
  Serious: Yes (Death, Hospitalization)
  Sender: FDA-Public Use
  Company Number: KR-OTSUKA-JP-2014-15032

PATIENT
  Age: 55 Year
  Sex: Male
  Weight: 63 kg

DRUGS (3)
  1. BORTEZOMIB. [Suspect]
     Active Substance: BORTEZOMIB
     Indication: PLASMA CELL MYELOMA
     Dosage: 2.2 MG, QD
     Route: 042
     Dates: start: 20130326, end: 20130404
  2. BUSULFAN. [Suspect]
     Active Substance: BUSULFAN
     Indication: PLASMA CELL MYELOMA
     Dosage: 3.2 MG/KG, QD
     Route: 042
     Dates: start: 20130327, end: 20130329
  3. MELPHALAN. [Suspect]
     Active Substance: MELPHALAN
     Indication: PLASMA CELL MYELOMA
     Dosage: 140 MG/M2, QD
     Route: 042
     Dates: start: 20130330, end: 20130330

REACTIONS (2)
  - Dehydration [Recovered/Resolved]
  - Death [Fatal]

NARRATIVE: CASE EVENT DATE: 20130429
